FAERS Safety Report 5613191-1 (Version None)
Quarter: 2008Q1

REPORT INFORMATION
  Report Type: 
  Country: None (occurrence: None)
  Receive Date: 20080129
  Receipt Date: 20080111
  Transmission Date: 20080703
  Serious: Yes (Death, Hospitalization)
  Sender: FDA-Public Use
  Company Number: 2008US000244

PATIENT
  Age: 33 Year
  Sex: Female

DRUGS (6)
  1. AMBISOME [Suspect]
     Indication: CEREBRAL ASPERGILLOSIS
  2. VFEND                                (VORICONIZOLE) [Suspect]
     Indication: DRUG USE FOR UNKNOWN INDICATION
     Dosage: 200 MG, IV NOS
     Route: 042
     Dates: end: 20071127
  3. BACTRIM [Suspect]
     Indication: DRUG USE FOR UNKNOWN INDICATION
     Dates: end: 20071127
  4. KETAMINE               (KETAMINE) [Suspect]
     Indication: DRUG USE FOR UNKNOWN INDICATION
  5. MEROPEN                       (MEROPENEM) [Concomitant]
  6. COLISTIN SULFATE                    (COLISTIN SULFATE) [Concomitant]

REACTIONS (20)
  - ACINETOBACTER INFECTION [None]
  - BILIARY CIRRHOSIS PRIMARY [None]
  - CAESAREAN SECTION [None]
  - CEREBRAL ASPERGILLOSIS [None]
  - CYTOLYTIC HEPATITIS [None]
  - DRUG EXPOSURE DURING PREGNANCY [None]
  - DRUG LEVEL INCREASED [None]
  - HAEMOLYSIS [None]
  - HEPATIC ENCEPHALOPATHY [None]
  - LUNG DISORDER [None]
  - MULTIPLE-DRUG RESISTANCE [None]
  - POST PROCEDURAL COMPLICATION [None]
  - POSTOPERATIVE RENAL FAILURE [None]
  - PREGNANCY [None]
  - PROCEDURAL HYPERTENSION [None]
  - PROTHROMBIN TIME PROLONGED [None]
  - SEPSIS [None]
  - SEPTIC SHOCK [None]
  - THROMBOCYTOPENIA [None]
  - VENTRICULAR TACHYCARDIA [None]
